FAERS Safety Report 7285311-7 (Version None)
Quarter: 2011Q1

REPORT INFORMATION
  Report Type: 
  Country: None (occurrence: None)
  Receive Date: 20110210
  Receipt Date: 20110204
  Transmission Date: 20110831
  Serious: Yes (Hospitalization)
  Sender: FDA-Public Use
  Company Number: FR-SANOFI-AVENTIS-2011SA007291

PATIENT
  Age: 77 Year
  Sex: Male

DRUGS (5)
  1. TAHOR [Suspect]
     Route: 048
  2. MULTAQ [Suspect]
     Indication: ATRIAL FIBRILLATION
     Route: 048
     Dates: start: 20101130
  3. AMBROXOL [Concomitant]
     Route: 048
  4. ANDROCUR [Suspect]
     Route: 048
  5. ZOLADEX [Concomitant]
     Route: 058

REACTIONS (7)
  - CHOLESTASIS [None]
  - RENAL FAILURE [None]
  - CYTOLYTIC HEPATITIS [None]
  - VOMITING [None]
  - PROTHROMBIN TIME RATIO DECREASED [None]
  - DRUG INTERACTION [None]
  - DECREASED APPETITE [None]
